FAERS Safety Report 5832553-0 (Version None)
Quarter: 2008Q3

REPORT INFORMATION
  Report Type: 
  Country: None (occurrence: None)
  Receive Date: 20080731
  Receipt Date: 20080718
  Transmission Date: 20090109
  Serious: Yes (Hospitalization, Other)
  Sender: FDA-Public Use
  Company Number: 2008JP003119

PATIENT
  Age: 13 Year
  Sex: Female
  Weight: 32 kg

DRUGS (17)
  1. FUNGUARD(MICAFUNGIN) INJECTION [Suspect]
     Dosage: 3 MG/KG, UID/QD, IV DRIP;  6 MG/KG, UID/QD, IV DRIP;  3 MG/KG, UID/QD, IV DRIP
     Route: 041
     Dates: start: 20070916, end: 20071006
  2. FUNGUARD(MICAFUNGIN) INJECTION [Suspect]
     Dosage: 3 MG/KG, UID/QD, IV DRIP;  6 MG/KG, UID/QD, IV DRIP;  3 MG/KG, UID/QD, IV DRIP
     Route: 041
     Dates: start: 20071007, end: 20071015
  3. FUNGUARD(MICAFUNGIN) INJECTION [Suspect]
     Dosage: 3 MG/KG, UID/QD, IV DRIP;  6 MG/KG, UID/QD, IV DRIP;  3 MG/KG, UID/QD, IV DRIP
     Route: 041
     Dates: start: 20071016, end: 20071114
  4. PROGRAF [Suspect]
     Indication: CORD BLOOD TRANSPLANT THERAPY
     Dosage: IV NOS
     Route: 042
     Dates: start: 20070916, end: 20071109
  5. PROGRAF [Suspect]
     Indication: CORD BLOOD TRANSPLANT THERAPY
     Dosage: 2 MG, /D, ORAL
     Route: 048
     Dates: start: 20071110
  6. SOLU-MEDROL [Suspect]
     Dosage: 31.5 MG, /D
     Dates: start: 20071008, end: 20071016
  7. ACYCLOVIR [Concomitant]
  8. FIRSTCIN (CEFOZOPRAN HYDROCHLORIDE) INJECTION [Concomitant]
  9. CARBENIN (BETAMIPRON, PANIPENEM) INJECTION [Concomitant]
  10. VANCOMYCIN [Concomitant]
  11. METHOTREXATE [Concomitant]
  12. LEUKOPROL (MIRIMOSTIM) INJECTION [Concomitant]
  13. NEUTROGIN (LENOGRASTIM) INJECTION [Concomitant]
  14. GAMMAGARD (IMMUNOGLOBULIN) INJECTION [Concomitant]
  15. FLUDARA [Concomitant]
  16. CYCLOPHOSPHAMIDE [Concomitant]
  17. STRONGER NEO MINOPHAGEN C (AMINOACETIC ACID, GLYCYRRHIZIC ACID, CYSTEI [Concomitant]

REACTIONS (10)
  - ACUTE GRAFT VERSUS HOST DISEASE IN SKIN [None]
  - ALANINE AMINOTRANSFERASE INCREASED [None]
  - ARTHRALGIA [None]
  - ASPARTATE AMINOTRANSFERASE INCREASED [None]
  - ENGRAFTMENT SYNDROME [None]
  - HYPERTRIGLYCERIDAEMIA [None]
  - LIVER DISORDER [None]
  - PRODUCTIVE COUGH [None]
  - PYREXIA [None]
  - RALES [None]
